FAERS Safety Report 4554495-3 (Version None)
Quarter: 2005Q1

REPORT INFORMATION
  Report Type: 
  Country: None (occurrence: None)
  Receive Date: 20050114
  Receipt Date: 20040419
  Transmission Date: 20050727
  Serious: Yes (Hospitalization)
  Sender: FDA-Public Use
  Company Number: PHFR2004GB01815

PATIENT
  Age: 77 Year
  Sex: Male
  Weight: 76 kg

DRUGS (6)
  1. DICLOFENAC (DICLOFENAC) UNKNOWN [Suspect]
     Indication: PAIN
     Dosage: 50 MG, TID, ORAL
     Route: 048
     Dates: start: 20040317, end: 20040329
  2. ACETYLSALICYLIC ACID SRT [Suspect]
     Indication: MYOCARDIAL INFARCTION
     Dosage: 75 MG, QD, ORAL
     Route: 048
     Dates: end: 20040329
  3. LISINOPRL (LISINOPRIL) [Concomitant]
  4. PRAVASTATIN [Concomitant]
  5. AMITRIPTYLINE (AMITRIPTYLINE) [Concomitant]
  6. ALLOPURINOL [Concomitant]

REACTIONS (7)
  - BLOOD CREATININE INCREASED [None]
  - BLOOD UREA INCREASED [None]
  - GOUT [None]
  - HAEMOGLOBIN DECREASED [None]
  - MELAENA [None]
  - PAIN [None]
  - RENAL IMPAIRMENT [None]
